FAERS Safety Report 4649146-3 (Version None)
Quarter: 2005Q2

REPORT INFORMATION
  Report Type: 
  Country: None (occurrence: None)
  Receive Date: 20050429
  Receipt Date: 20050323
  Transmission Date: 20051028
  Serious: Yes (Life-Threatening, Hospitalization)
  Sender: FDA-Public Use
  Company Number: 139826

PATIENT
  Age: 73 Year
  Sex: Female
  Weight: 75 kg

DRUGS (3)
  1. AUGMENTIN '125' [Suspect]
     Indication: URINARY TRACT INFECTION
     Dosage: 1000MG TWICE PER DAY
     Route: 048
  2. MARCUMAR [Concomitant]
     Route: 048
  3. MULTIPLE DRUGS [Concomitant]
     Route: 065

REACTIONS (14)
  - ANAEMIA [None]
  - ANOREXIA [None]
  - FATIGUE [None]
  - GASTROINTESTINAL HAEMORRHAGE [None]
  - GENERAL PHYSICAL HEALTH DETERIORATION [None]
  - MELAENA [None]
  - NAUSEA [None]
  - NEUTROPENIC SEPSIS [None]
  - NO REACTION ON PREVIOUS EXPOSURE TO DRUG [None]
  - OBESITY [None]
  - PANCYTOPENIA [None]
  - PNEUMONIA [None]
  - PULMONARY EMBOLISM [None]
  - THROMBOCYTOPENIA [None]
